FAERS Safety Report 24159817 (Version 1)
Quarter: 2024Q3

REPORT INFORMATION
  Report Type: Report from Study
  Country: RO (occurrence: RO)
  Receive Date: 20240731
  Receipt Date: 20240731
  Transmission Date: 20241016
  Serious: Yes (Other)
  Sender: JOHNSON AND JOHNSON
  Company Number: RO-JNJFOC-20240756507

PATIENT

DRUGS (2)
  1. INVEGA [Suspect]
     Active Substance: PALIPERIDONE
     Indication: Schizophrenia
     Route: 065
  2. RISPERDAL [Suspect]
     Active Substance: RISPERIDONE
     Indication: Schizophrenia
     Route: 065

REACTIONS (42)
  - Dystonia [Unknown]
  - Epilepsy [Unknown]
  - Erectile dysfunction [Unknown]
  - Disturbance in attention [Unknown]
  - Asthenia [Unknown]
  - Sedation [Unknown]
  - Memory impairment [Unknown]
  - Depression [Unknown]
  - Restlessness [Unknown]
  - Hypersomnia [Unknown]
  - Insomnia [Unknown]
  - Abnormal dreams [Unknown]
  - Emotional disorder [Unknown]
  - Muscle rigidity [Unknown]
  - Hypokinesia [Unknown]
  - Hyperkinesia [Unknown]
  - Tremor [Unknown]
  - Akathisia [Unknown]
  - Paraesthesia [Unknown]
  - Vision blurred [Unknown]
  - Salivary hypersecretion [Unknown]
  - Dry mouth [Unknown]
  - Vomiting [Unknown]
  - Nausea [Unknown]
  - Diarrhoea [Unknown]
  - Constipation [Unknown]
  - Micturition disorder [Unknown]
  - Polyuria [Unknown]
  - Polydipsia [Unknown]
  - Dizziness postural [Unknown]
  - Tachycardia [Unknown]
  - Palpitations [Unknown]
  - Weight increased [Unknown]
  - Heavy menstrual bleeding [Unknown]
  - Amenorrhoea [Unknown]
  - Galactorrhoea [Unknown]
  - Gynaecomastia [Unknown]
  - Libido decreased [Unknown]
  - Orgasm abnormal [Unknown]
  - Vulvovaginal dryness [Unknown]
  - Blood prolactin increased [Unknown]
  - Headache [Unknown]
